FAERS Safety Report 17924711 (Version 2)
Quarter: 2020Q3

REPORT INFORMATION
  Report Type: Other
  Country: US (occurrence: US)
  Receive Date: 20200622
  Receipt Date: 20200921
  Transmission Date: 20201103
  Serious: No
  Sender: FDA-Public Use
  Company Number: US-ACORDA-ACO_164989_2020

PATIENT
  Sex: Female

DRUGS (2)
  1. INBRIJA [Suspect]
     Active Substance: LEVODOPA
     Indication: ON AND OFF PHENOMENON
  2. INBRIJA [Suspect]
     Active Substance: LEVODOPA
     Indication: PARKINSON^S DISEASE
     Dosage: 84 MILLIGRAM, PRN (ALSO: 2 CAPSULES TID PRN), NOT TO EXCEED 5 DOSES A DAY

REACTIONS (5)
  - Feeling cold [Unknown]
  - Pain in extremity [Unknown]
  - Drug ineffective [Unknown]
  - Hypokinesia [Unknown]
  - Device issue [Unknown]
